FAERS Safety Report 15019616 (Version 1)
Quarter: 2018Q2

REPORT INFORMATION
  Report Type: Other
  Country: US (occurrence: US)
  Receive Date: 20180618
  Receipt Date: 20180618
  Transmission Date: 20180711
  Serious: Yes (Life-Threatening)
  Sender: FDA-Public Use
  Company Number: US-DEXPHARM-20180424

PATIENT
  Age: 16 Year
  Sex: Male

DRUGS (5)
  1. METHYLPHENIDATE. [Concomitant]
     Active Substance: METHYLPHENIDATE
  2. LAMOTRIGINE. [Suspect]
     Active Substance: LAMOTRIGINE
     Indication: FOCAL DYSCOGNITIVE SEIZURES
  3. LEVETIRACETAM. [Suspect]
     Active Substance: LEVETIRACETAM
     Indication: FOCAL DYSCOGNITIVE SEIZURES
  4. HALOPERIDOL. [Concomitant]
     Active Substance: HALOPERIDOL
  5. GUANFACINE. [Concomitant]
     Active Substance: GUANFACINE

REACTIONS (1)
  - Atrioventricular block [Recovered/Resolved]
